FAERS Safety Report 5572382-9 (Version None)
Quarter: 2007Q4

REPORT INFORMATION
  Report Type: 
  Country: None (occurrence: None)
  Receive Date: 20071219
  Receipt Date: 20071205
  Transmission Date: 20080405
  Serious: Yes (Hospitalization)
  Sender: FDA-Public Use
  Company Number: DSA_30982_2007

PATIENT
  Age: 81 Year
  Sex: Female

DRUGS (3)
  1. ENALAPRIL MALEATE [Suspect]
     Indication: CARDIAC FAILURE
     Dosage: (20 MG QD ORAL)
     Route: 048
     Dates: start: 20070101, end: 20070127
  2. ALDACTONE [Suspect]
     Indication: CARDIAC FAILURE
     Dosage: (DF ORAL)
     Route: 048
     Dates: start: 20070101, end: 20070125
  3. SEGURIL /00032601/ [Concomitant]

REACTIONS (3)
  - DRUG INTERACTION [None]
  - HYPERKALAEMIA [None]
  - RENAL FAILURE [None]
